FAERS Safety Report 6883765-9 (Version None)
Quarter: 2010Q3

REPORT INFORMATION
  Report Type: 
  Country: None (occurrence: None)
  Receive Date: 20100729
  Receipt Date: 20100726
  Transmission Date: 20110219
  Serious: Yes (Other)
  Sender: FDA-Public Use
  Company Number: D0068412A

PATIENT
  Age: 7 Year
  Sex: Male
  Weight: 34 kg

DRUGS (2)
  1. LAMOTRIGINE [Suspect]
     Dosage: 10MG PER DAY
     Route: 048
     Dates: start: 20100201, end: 20100301
  2. VALPROAT [Suspect]
     Dosage: 1500MG PER DAY
     Route: 048
     Dates: start: 20091201, end: 20100301

REACTIONS (3)
  - DECREASED APPETITE [None]
  - GASTROINTESTINAL PAIN [None]
  - TRANSAMINASES INCREASED [None]
